FAERS Safety Report 16323734 (Version 1)
Quarter: 2019Q2

REPORT INFORMATION
  Report Type: Spontaneous
  Country: IN (occurrence: IN)
  Receive Date: 20190517
  Receipt Date: 20190517
  Transmission Date: 20190711
  Serious: Yes (Other)
  Sender: FDA-Public Use
  Company Number: IN-LUPIN LIMITED-2019-02341

PATIENT
  Age: 6 Year
  Sex: Male

DRUGS (17)
  1. OXCARBAZEPINE. [Concomitant]
     Active Substance: OXCARBAZEPINE
     Indication: SEIZURE
  2. OLANZAPINE. [Suspect]
     Active Substance: OLANZAPINE
     Indication: INTELLECTUAL DISABILITY
     Dosage: 5 MILLIGRAM
     Route: 065
  3. OLANZAPINE. [Suspect]
     Active Substance: OLANZAPINE
     Dosage: UNK (RESTARTED)
     Route: 065
  4. CLOBAZAM. [Concomitant]
     Active Substance: CLOBAZAM
     Indication: INTELLECTUAL DISABILITY
     Dosage: 10 MILLIGRAM
     Route: 065
  5. OXCARBAZEPINE. [Concomitant]
     Active Substance: OXCARBAZEPINE
     Indication: ATTENTION DEFICIT/HYPERACTIVITY DISORDER
  6. SODIUM VALPROATE [Concomitant]
     Active Substance: VALPROATE SODIUM
     Indication: INTELLECTUAL DISABILITY
     Dosage: 900 MILLIGRAM
     Route: 065
  7. SODIUM VALPROATE [Concomitant]
     Active Substance: VALPROATE SODIUM
     Indication: ATTENTION DEFICIT/HYPERACTIVITY DISORDER
  8. CLONIDINE. [Suspect]
     Active Substance: CLONIDINE
     Dosage: 0.2 MILLIGRAM (OPTIMIZED)
     Route: 065
  9. OLANZAPINE. [Suspect]
     Active Substance: OLANZAPINE
     Indication: ATTENTION DEFICIT/HYPERACTIVITY DISORDER
     Dosage: 2.5 MILLIGRAM
     Route: 065
     Dates: start: 2001
  10. CLOBAZAM. [Concomitant]
     Active Substance: CLOBAZAM
     Indication: ATTENTION DEFICIT/HYPERACTIVITY DISORDER
  11. ATOMOXETINE. [Concomitant]
     Active Substance: ATOMOXETINE HYDROCHLORIDE
     Dosage: 28 MILLIGRAM (OPTIMIZED OVER A PERIOD OF 6 WEEKS)
     Route: 065
  12. SODIUM VALPROATE [Concomitant]
     Active Substance: VALPROATE SODIUM
     Indication: SEIZURE
  13. CLOBAZAM. [Concomitant]
     Active Substance: CLOBAZAM
     Indication: SEIZURE
  14. OXCARBAZEPINE. [Concomitant]
     Active Substance: OXCARBAZEPINE
     Indication: INTELLECTUAL DISABILITY
     Dosage: 900 MILLIGRAM
     Route: 065
  15. ATOMOXETINE. [Concomitant]
     Active Substance: ATOMOXETINE HYDROCHLORIDE
     Indication: PSYCHOMOTOR HYPERACTIVITY
     Dosage: UNK
     Route: 065
  16. CLONIDINE. [Suspect]
     Active Substance: CLONIDINE
     Indication: PSYCHOMOTOR HYPERACTIVITY
     Dosage: UNK
     Route: 065
  17. OLANZAPINE. [Suspect]
     Active Substance: OLANZAPINE
     Indication: SEIZURE
     Dosage: 1.25 MILLIGRAM
     Route: 065

REACTIONS (3)
  - Rebound psychosis [Recovered/Resolved]
  - Somnolence [Unknown]
  - Drug withdrawal syndrome [Recovered/Resolved]
